FAERS Safety Report 22030857 (Version 2)
Quarter: 2023Q1

REPORT INFORMATION
  Report Type: Spontaneous
  Country: US (occurrence: US)
  Receive Date: 20230223
  Receipt Date: 20230227
  Transmission Date: 20230418
  Serious: Yes (Other)
  Sender: FDA-Public Use
  Company Number: US-PFIZER INC-202300078103

PATIENT
  Age: 59 Year
  Sex: Male
  Weight: 90.72 kg

DRUGS (1)
  1. FLUCONAZOLE [Suspect]
     Active Substance: FLUCONAZOLE
     Indication: Oral fungal infection
     Dosage: 400 MG
     Dates: start: 20230207, end: 20230219

REACTIONS (6)
  - Hypotension [Recovering/Resolving]
  - Heart rate increased [Not Recovered/Not Resolved]
  - Lethargy [Not Recovered/Not Resolved]
  - Skin laceration [Unknown]
  - Swelling [Recovering/Resolving]
  - Swelling face [Recovering/Resolving]

NARRATIVE: CASE EVENT DATE: 20230201
